FAERS Safety Report 9260637 (Version 2)
Quarter: 2013Q2

REPORT INFORMATION
  Report Type: Spontaneous
  Country: JP (occurrence: JP)
  Receive Date: 20130429
  Receipt Date: 20130523
  Transmission Date: 20140414
  Serious: Yes (Other)
  Sender: FDA-Public Use
  Company Number: JP-PFIZER INC-2013133102

PATIENT
  Sex: Male

DRUGS (2)
  1. CYMBALTA [Suspect]
  2. TEGRETOL [Concomitant]
     Indication: TRIGEMINAL NEURALGIA
     Dosage: 100 MG, 1X/DAY
     Route: 048

REACTIONS (2)
  - Dizziness [Recovered/Resolved]
  - Bedridden [Recovered/Resolved]
